FAERS Safety Report 8272550-1 (Version None)
Quarter: 2012Q2

REPORT INFORMATION
  Report Type: 
  Country: None (occurrence: None)
  Receive Date: 20120410
  Receipt Date: 20120228
  Transmission Date: 20120825
  Serious: Yes (Hospitalization)
  Sender: FDA-Public Use
  Company Number: FR-ROCHE-1055839

PATIENT
  Sex: Male

DRUGS (5)
  1. SOMATROPIN [Suspect]
     Indication: PITUITARY HYPOPLASIA
  2. HYDROCORTISONE [Concomitant]
     Route: 048
     Dates: start: 19960418
  3. SOMATROPIN [Suspect]
     Indication: GROWTH HORMONE DEFICIENCY
     Route: 058
     Dates: start: 20060529
  4. SOMATROPIN [Suspect]
     Indication: HYPOPITUITARISM
  5. LEVOTHYROXINE SODIUM [Concomitant]
     Route: 048
     Dates: start: 19960503

REACTIONS (1)
  - GASTROENTERITIS [None]
